FAERS Safety Report 9581390 (Version 2)
Quarter: 2013Q4

REPORT INFORMATION
  Report Type: Spontaneous
  Country: US (occurrence: US)
  Receive Date: 20131002
  Receipt Date: 20131002
  Transmission Date: 20140711
  Serious: Yes (Hospitalization, Other)
  Sender: FDA-Public Use
  Company Number: US-009507513-2007-165251-NL

PATIENT
  Sex: Female
  Weight: 115.21 kg

DRUGS (4)
  1. NUVARING [Suspect]
     Indication: CONTRACEPTION
     Dosage: CONTINUING: NO
     Route: 067
     Dates: start: 20050527, end: 20060213
  2. NUVARING [Suspect]
     Indication: MENSTRUAL CYCLE MANAGEMENT
  3. LASIX (FUROSEMIDE) [Concomitant]
     Indication: OEDEMA
  4. METRONIDAZOLE [Concomitant]
     Indication: PRODUCT USED FOR UNKNOWN INDICATION

REACTIONS (6)
  - Cholelithiasis [Recovered/Resolved]
  - Renal atrophy [Unknown]
  - Deep vein thrombosis [Recovered/Resolved]
  - Chest pain [Unknown]
  - Microcytic anaemia [Unknown]
  - Off label use [Unknown]
